FAERS Safety Report 6501808-9 (Version None)
Quarter: 2009Q4

REPORT INFORMATION
  Report Type: 
  Country: None (occurrence: None)
  Receive Date: 20091216
  Receipt Date: 20090708
  Transmission Date: 20100525
  Serious: No
  Sender: FDA-Public Use
  Company Number: US-AMGEN-US351680

PATIENT
  Age: 51 Year
  Sex: Female
  Weight: 117.1 kg

DRUGS (4)
  1. ARANESP [Suspect]
     Indication: RENAL FAILURE CHRONIC
     Route: 058
     Dates: start: 20080826, end: 20081222
  2. TRAMADOL HCL [Concomitant]
     Dates: start: 20080603
  3. NORVASC [Concomitant]
     Dates: start: 20080714
  4. CLONIDINE [Concomitant]
     Dates: start: 20081028

REACTIONS (2)
  - ARTHRALGIA [None]
  - MYOPATHY [None]
